FAERS Safety Report 8419628-7 (Version None)
Quarter: 2012Q2

REPORT INFORMATION
  Report Type: 
  Country: None (occurrence: None)
  Receive Date: 20120607
  Receipt Date: 20110126
  Transmission Date: 20120825
  Serious: Yes (Other)
  Sender: FDA-Public Use
  Company Number: PHHY2011PT02018

PATIENT
  Age: 13 Year
  Sex: Female

DRUGS (3)
  1. GENTAMICIN [Concomitant]
  2. FLUCLOXACILLIN [Concomitant]
  3. CYCLOSPORINE [Suspect]
     Indication: DERMATITIS ATOPIC
     Route: 048

REACTIONS (7)
  - LIVER DISORDER [None]
  - ASPARTATE AMINOTRANSFERASE INCREASED [None]
  - RENAL IMPAIRMENT [None]
  - DRUG INTERACTION [None]
  - HERPES VIRUS INFECTION [None]
  - BLOOD UREA INCREASED [None]
  - ALANINE AMINOTRANSFERASE INCREASED [None]
